FAERS Safety Report 17105245 (Version 2)
Quarter: 2019Q4

REPORT INFORMATION
  Report Type: Spontaneous
  Country: FR (occurrence: FR)
  Receive Date: 20191203
  Receipt Date: 20191224
  Transmission Date: 20200122
  Serious: Yes (Other)
  Sender: FDA-Public Use
  Company Number: FR-TEVA-2019-FR-1146667

PATIENT
  Sex: Female
  Weight: 54 kg

DRUGS (1)
  1. COPAXONE [Suspect]
     Active Substance: GLATIRAMER ACETATE
     Route: 058

REACTIONS (3)
  - Wrong technique in product usage process [Unknown]
  - Injection site necrosis [Not Recovered/Not Resolved]
  - Injection site atrophy [Not Recovered/Not Resolved]

NARRATIVE: CASE EVENT DATE: 2018
